FAERS Safety Report 22102186 (Version 1)
Quarter: 2023Q1

REPORT INFORMATION
  Report Type: Other
  Country: CA (occurrence: CA)
  Receive Date: 20230316
  Receipt Date: 20230316
  Transmission Date: 20230417
  Serious: Yes (Hospitalization, Other)
  Sender: FDA-Public Use
  Company Number: CA-CELLTRION INC.-2023CA005073

PATIENT

DRUGS (17)
  1. RITUXIMAB [Suspect]
     Active Substance: RITUXIMAB
     Indication: Non-Hodgkin^s lymphoma
     Dosage: 730 MILLIGRAM, CYCLICAL
  2. CYTARABINE [Suspect]
     Active Substance: CYTARABINE
     Indication: Non-Hodgkin^s lymphoma
     Dosage: 3900 MILLIGRAM, CYCLICAL
  3. METHOTREXATE [Suspect]
     Active Substance: METHOTREXATE
     Indication: Non-Hodgkin^s lymphoma
     Dosage: 5850 MILLIGRAM, CYCLICAL
  4. METHOTREXATE [Suspect]
     Active Substance: METHOTREXATE
     Dosage: 975 MILLIGRAM, CYCLICAL
  5. THIOTEPA [Suspect]
     Active Substance: THIOTEPA
     Indication: Non-Hodgkin^s lymphoma
     Dosage: 60 MILLIGRAM, CYCLICAL
  6. DEXAMETHASONE [Concomitant]
     Active Substance: DEXAMETHASONE
     Dosage: DOSAGE FORM: LIQUID INTRA-ARTICULAR
  7. FILGRASTIM [Concomitant]
     Active Substance: FILGRASTIM
  8. FUROSEMIDE [Concomitant]
     Active Substance: FUROSEMIDE
  9. GOSERELIN ACETATE [Concomitant]
     Active Substance: GOSERELIN ACETATE
  10. LORATADINE [Concomitant]
     Active Substance: LORATADINE
     Route: 065
  11. LORAZEPAM [Concomitant]
     Active Substance: LORAZEPAM
     Route: 065
  12. METOCLOPRAMIDE [Concomitant]
     Active Substance: METOCLOPRAMIDE
  13. OLANZAPINE [Concomitant]
     Active Substance: OLANZAPINE
  14. ONDANSETRON [Concomitant]
     Active Substance: ONDANSETRON
  15. POLYETHYLENE GLYCOLS [Concomitant]
     Active Substance: POLYETHYLENE GLYCOLS
  16. TINZAPARIN [Concomitant]
     Active Substance: TINZAPARIN
  17. SULFAMETHOXAZOLE\TRIMETHOPRIM [Concomitant]
     Active Substance: SULFAMETHOXAZOLE\TRIMETHOPRIM

REACTIONS (4)
  - Febrile neutropenia [Recovered/Resolved]
  - Bacteraemia [Recovered/Resolved]
  - Moraxella infection [Recovered/Resolved]
  - Overdose [Unknown]
